FAERS Safety Report 5006017-0 (Version None)
Quarter: 2006Q2

REPORT INFORMATION
  Report Type: 
  Country: None (occurrence: None)
  Receive Date: 20060518
  Receipt Date: 20050709
  Transmission Date: 20061013
  Serious: Yes (Death)
  Sender: FDA-Public Use
  Company Number: US-ABBOTT-05P-163-0305357-02

PATIENT
  Sex: Male

DRUGS (9)
  1. RITONAVIR SOFT GELATIN CAPSULES [Suspect]
     Indication: HIV INFECTION
     Route: 048
     Dates: start: 20030911, end: 20050630
  2. TIPRANAVIR [Concomitant]
     Indication: HIV INFECTION
     Route: 048
     Dates: start: 20030911, end: 20050630
  3. CIPROFLOXACIN [Concomitant]
     Indication: DIARRHOEA INFECTIOUS
     Route: 048
     Dates: start: 20040924, end: 20050630
  4. METRONIDAZOLE [Concomitant]
     Indication: DIARRHOEA INFECTIOUS
     Route: 048
     Dates: start: 20040924, end: 20050630
  5. NORTRIPTYLINE HCL [Concomitant]
     Indication: DRUG USE FOR UNKNOWN INDICATION
     Route: 048
     Dates: start: 20041201, end: 20050630
  6. NORTRIPTYLINE HCL [Concomitant]
     Route: 048
     Dates: start: 20041206, end: 20050630
  7. LAMIVUDINE [Concomitant]
     Indication: HIV INFECTION
     Route: 048
     Dates: start: 20030913, end: 20050630
  8. STAVUDINE [Concomitant]
     Indication: HIV INFECTION
     Route: 048
     Dates: start: 20030911, end: 20050630
  9. TENOFOVIR [Concomitant]
     Indication: HIV INFECTION
     Route: 048
     Dates: start: 20021001, end: 20050630

REACTIONS (1)
  - DEATH [None]
